FAERS Safety Report 6438338-9 (Version None)
Quarter: 2009Q4

REPORT INFORMATION
  Report Type: 
  Country: None (occurrence: None)
  Receive Date: 20091112
  Receipt Date: 20081128
  Transmission Date: 20100525
  Serious: No
  Sender: FDA-Public Use
  Company Number: US-ASTRAZENECA-2009UW17356

PATIENT
  Age: 84 Year
  Sex: Female

DRUGS (3)
  1. PRILOSEC OTC [Suspect]
     Dosage: 1 TABLET, 1 /DAY FOR 1 DAY
     Route: 048
     Dates: start: 20081128, end: 20081128
  2. SYNTHROID [Concomitant]
  3. NEXIUM [Concomitant]

REACTIONS (4)
  - DYSPHONIA [None]
  - FOREIGN BODY ASPIRATION [None]
  - OROPHARYNGEAL PAIN [None]
  - THROAT IRRITATION [None]
